FAERS Safety Report 11459346 (Version 5)
Quarter: 2016Q1

REPORT INFORMATION
  Report Type: Spontaneous
  Country: US (occurrence: US)
  Receive Date: 20150904
  Receipt Date: 20160225
  Transmission Date: 20160525
  Serious: Yes (Hospitalization, Other)
  Sender: FDA-Public Use
  Company Number: US-PFIZER INC-2015296228

PATIENT
  Age: 72 Year
  Sex: Female
  Weight: 75 kg

DRUGS (4)
  1. GLUCOSAMINE [Concomitant]
     Active Substance: GLUCOSAMINE
     Dosage: 2 DF, UNK
     Dates: start: 1990
  2. AROMASIN [Suspect]
     Active Substance: EXEMESTANE
     Indication: BREAST CANCER
     Dosage: 25 MG (ONE TABLET), 1X/DAY (AT NIGHT)
     Route: 048
     Dates: start: 201106
  3. VITAMIN C [Concomitant]
     Active Substance: ASCORBIC ACID
     Dosage: 2 DF, UNK
     Dates: start: 201505
  4. TRIAMTERENE. [Concomitant]
     Active Substance: TRIAMTERENE
     Indication: HYPERTENSION
     Dosage: 1 DF, UNK
     Dates: start: 2012

REACTIONS (7)
  - Body height decreased [Not Recovered/Not Resolved]
  - Meniscus injury [Unknown]
  - Alopecia [Not Recovered/Not Resolved]
  - Fall [Unknown]
  - Osteoporosis [Recovering/Resolving]
  - Joint injury [Unknown]
  - Spinal column injury [Unknown]

NARRATIVE: CASE EVENT DATE: 201505
